FAERS Safety Report 7632772-7 (Version None)
Quarter: 2011Q3

REPORT INFORMATION
  Report Type: 
  Country: None (occurrence: None)
  Receive Date: 20110725
  Receipt Date: 20110110
  Transmission Date: 20111222
  Serious: No
  Sender: FDA-Public Use
  Company Number: US-BRISTOL-MYERS SQUIBB COMPANY-15478373

PATIENT
  Age: 79 Year
  Sex: Female

DRUGS (2)
  1. COUMADIN [Suspect]
     Indication: TYPE 2 DIABETES MELLITUS
  2. LANTUS [Suspect]
     Indication: TYPE 2 DIABETES MELLITUS
     Dosage: PARENTRAL,INJECTION,SOLUTION.1 DF=100IU/ML, 10UNITS DAILY SC
     Route: 058

REACTIONS (1)
  - INJECTION SITE HAEMATOMA [None]
